FAERS Safety Report 5968692-3 (Version None)
Quarter: 2008Q4

REPORT INFORMATION
  Report Type: 
  Country: None (occurrence: None)
  Receive Date: 20081126
  Receipt Date: 20081027
  Transmission Date: 20090506
  Serious: No
  Sender: FDA-Public Use
  Company Number: US-BAYER-200836732NA

PATIENT
  Sex: Female

DRUGS (1)
  1. MAGNEVIST [Suspect]
     Indication: DRUG USE FOR UNKNOWN INDICATION
     Dates: start: 20081021, end: 20081021

REACTIONS (5)
  - DRUG CLEARANCE DECREASED [None]
  - FEELING ABNORMAL [None]
  - PAIN IN EXTREMITY [None]
  - PALPITATIONS [None]
  - POLYMENORRHOEA [None]
